FAERS Safety Report 14226482 (Version 2)
Quarter: 2017Q4

REPORT INFORMATION
  Report Type: Spontaneous
  Country: LK (occurrence: LK)
  Receive Date: 20171127
  Receipt Date: 20171205
  Transmission Date: 20180321
  Serious: Yes (Death, Hospitalization)
  Sender: FDA-Public Use
  Company Number: LK-BAYER-2017-223887

PATIENT
  Age: 50 Year
  Sex: Female

DRUGS (5)
  1. ENOXAPARIN [Interacting]
     Active Substance: ENOXAPARIN
     Indication: ACUTE MYOCARDIAL INFARCTION
     Dosage: 60 MG, QD
     Dates: start: 20161008, end: 20161013
  2. ATORVASTATIN [Concomitant]
     Active Substance: ATORVASTATIN
     Indication: ACUTE MYOCARDIAL INFARCTION
     Dosage: 20 MG, QD
  3. ACETYLSALICYLIC ACID({=100 MG) [Suspect]
     Active Substance: ASPIRIN
     Indication: ACUTE MYOCARDIAL INFARCTION
     Dosage: 75 MG, QD
     Dates: start: 20161008, end: 20161013
  4. CLOPIDOGREL [Interacting]
     Active Substance: CLOPIDOGREL BISULFATE
     Indication: ACUTE MYOCARDIAL INFARCTION
     Dosage: 75 MG, QD
     Dates: start: 20161008, end: 20161013
  5. PARACETAMOL [Concomitant]
     Active Substance: ACETAMINOPHEN
     Indication: PAIN IN EXTREMITY
     Dosage: UNK
     Dates: start: 20160929

REACTIONS (6)
  - Pelvic venous thrombosis [None]
  - Drug administration error [None]
  - Pneumonia [Fatal]
  - Upper gastrointestinal haemorrhage [None]
  - Labelled drug-drug interaction medication error [None]
  - Respiratory failure [Fatal]

NARRATIVE: CASE EVENT DATE: 20161013
